FAERS Safety Report 26003595 (Version 2)
Quarter: 2025Q4

REPORT INFORMATION
  Report Type: Spontaneous
  Country: US (occurrence: US)
  Receive Date: 20251106
  Receipt Date: 20251202
  Transmission Date: 20260118
  Serious: No
  Sender: SANOFI AVENTIS
  Company Number: US-SANOFI-02703891

PATIENT
  Age: 48 Year
  Sex: Male

DRUGS (1)
  1. LANTUS SOLOSTAR [Suspect]
     Active Substance: INSULIN GLARGINE
     Indication: Diabetes mellitus
     Dosage: 16 TO 25 UNITS, QD, DEPENDING ON HIS BLOOD SUGAR IN THE MORNINGS

REACTIONS (2)
  - Blood glucose increased [Unknown]
  - Device mechanical issue [Unknown]
